FAERS Safety Report 8360295-9 (Version None)
Quarter: 2012Q2

REPORT INFORMATION
  Report Type: 
  Country: None (occurrence: None)
  Receive Date: 20120515
  Receipt Date: 20120504
  Transmission Date: 20120825
  Serious: Yes (Other)
  Sender: FDA-Public Use
  Company Number: CA-JNJFOC-20120506608

PATIENT
  Sex: Male
  Weight: 104.4 kg

DRUGS (5)
  1. METHOTREXATE [Concomitant]
     Route: 065
  2. CELEXA [Concomitant]
     Route: 065
  3. REMICADE [Suspect]
     Route: 042
     Dates: start: 20070101
  4. REMICADE [Suspect]
     Indication: CROHN'S DISEASE
     Route: 042
  5. IMODIUM [Concomitant]
     Route: 065

REACTIONS (1)
  - ARTHRITIS [None]
